FAERS Safety Report 17348540 (Version 1)
Quarter: 2020Q1

REPORT INFORMATION
  Report Type: Spontaneous
  Country: AF (occurrence: AF)
  Receive Date: 20200129
  Receipt Date: 20200129
  Transmission Date: 20200409
  Serious: No
  Sender: FDA-Public Use
  Company Number: None

PATIENT
  Age: 77 Year
  Sex: Female
  Weight: 85.5 kg

DRUGS (20)
  1. K2 [Concomitant]
     Active Substance: JWH-018
  2. VITAMIN D3 [Concomitant]
     Active Substance: CHOLECALCIFEROL
  3. COQ10 [Concomitant]
     Active Substance: UBIDECARENONE
  4. NATTAKINASE [Concomitant]
  5. OXYGEN. [Concomitant]
     Active Substance: OXYGEN
  6. JUNAVIA [Concomitant]
  7. TUMERIC [Concomitant]
     Active Substance: HERBALS\TURMERIC
  8. VITAMIN C [Concomitant]
     Active Substance: ASCORBIC ACID
  9. OFEV [Suspect]
     Active Substance: NINTEDANIB
     Indication: IDIOPATHIC PULMONARY FIBROSIS
     Route: 048
     Dates: start: 20190213, end: 20200129
  10. PLAVIX [Concomitant]
     Active Substance: CLOPIDOGREL BISULFATE
  11. PYCONOGENOL [Concomitant]
  12. LASIX [Concomitant]
     Active Substance: FUROSEMIDE
  13. COREG [Concomitant]
     Active Substance: CARVEDILOL
  14. COZAAR [Concomitant]
     Active Substance: LOSARTAN POTASSIUM
  15. NORVASC [Concomitant]
     Active Substance: AMLODIPINE BESYLATE
  16. TART CHERRY EXTRACT [Concomitant]
  17. MAGNESIUM [Concomitant]
     Active Substance: MAGNESIUM
  18. GUTO KOLA PROBIOTICS [Concomitant]
  19. LIPITOR [Concomitant]
     Active Substance: ATORVASTATIN CALCIUM
  20. METFORMIN [Concomitant]
     Active Substance: METFORMIN HYDROCHLORIDE

REACTIONS (5)
  - Decreased appetite [None]
  - Nausea [None]
  - Vomiting [None]
  - Weight decreased [None]
  - Diarrhoea [None]

NARRATIVE: CASE EVENT DATE: 20200129
